FAERS Safety Report 20025523 (Version 1)
Quarter: 2021Q4

REPORT INFORMATION
  Report Type: Spontaneous
  Country: US (occurrence: US)
  Receive Date: 20211102
  Receipt Date: 20211102
  Transmission Date: 20220304
  Serious: Yes (Other)
  Sender: FDA-Public Use
  Company Number: ALC2021US005730

PATIENT
  Age: 64 Year
  Sex: Male

DRUGS (6)
  1. BSS [Suspect]
     Active Substance: CALCIUM CHLORIDE\MAGNESIUM CHLORIDE\POTASSIUM CHLORIDE\SODIUM ACETATE\SODIUM CHLORIDE\SODIUM CITRATE
     Indication: Cataract operation
     Dosage: UNK
     Route: 065
     Dates: start: 20210724
  2. BETADINE [Suspect]
     Active Substance: POVIDONE-IODINE
     Indication: Sterilisation
     Dosage: UNK
     Route: 065
  3. BETADINE [Suspect]
     Active Substance: POVIDONE-IODINE
     Indication: Sterilisation
     Dosage: SKIN PREP
     Route: 065
  4. OMIDRIA [Suspect]
     Active Substance: KETOROLAC\PHENYLEPHRINE
     Indication: Cataract operation
     Dosage: UNK
     Route: 065
  5. PREDNISOLONE [Concomitant]
     Active Substance: PREDNISOLONE
     Indication: Postoperative care
     Dosage: UNK UNK, TID
     Route: 065
  6. OFLOXACIN [Concomitant]
     Active Substance: OFLOXACIN
     Indication: Product used for unknown indication
     Dosage: UNK UNK, TID
     Route: 048

REACTIONS (5)
  - Endophthalmitis [Recovering/Resolving]
  - Conjunctivitis [Recovering/Resolving]
  - Corneal oedema [Recovering/Resolving]
  - Eye pain [Recovering/Resolving]
  - Visual impairment [Recovering/Resolving]

NARRATIVE: CASE EVENT DATE: 20210723
